FAERS Safety Report 15687096 (Version 1)
Quarter: 2018Q4

REPORT INFORMATION
  Report Type: Spontaneous
  Country: US (occurrence: US)
  Receive Date: 20181204
  Receipt Date: 20181204
  Transmission Date: 20190205
  Serious: Yes (Hospitalization)
  Sender: FDA-Public Use
  Company Number: US-AMGEN-USASP2018171733

PATIENT
  Age: 65 Year
  Sex: Male

DRUGS (1)
  1. EPOGEN [Suspect]
     Active Substance: ERYTHROPOIETIN
     Indication: ANAEMIA
     Dosage: UNK (10,000 UNITS/ML)
     Route: 065

REACTIONS (5)
  - Aphasia [Unknown]
  - Unevaluable event [Unknown]
  - Product storage error [Unknown]
  - Ill-defined disorder [Not Recovered/Not Resolved]
  - Laboratory test abnormal [Unknown]

NARRATIVE: CASE EVENT DATE: 2017
